FAERS Safety Report 18304774 (Version 1)
Quarter: 2020Q3

REPORT INFORMATION
  Report Type: Report from Study
  Country: NL (occurrence: NL)
  Receive Date: 20200923
  Receipt Date: 20200923
  Transmission Date: 20201103
  Serious: Yes (Hospitalization)
  Sender: FDA-Public Use
  Company Number: NL-AMGEN-NLDSL2020092431

PATIENT
  Age: 49 Year
  Sex: Female

DRUGS (11)
  1. LEVOCETIRIZINE [Concomitant]
     Active Substance: LEVOCETIRIZINE
     Dosage: 5 MILLIGRAM, BID
  2. FORMOTEROL [Concomitant]
     Active Substance: FORMOTEROL
     Dosage: 12UG/DO 100DO INH, QOD
  3. CAPECITABINE. [Concomitant]
     Active Substance: CAPECITABINE
     Dosage: 500 MILLIGRAM, 2D3T
  4. PARACETAMOL [Concomitant]
     Active Substance: ACETAMINOPHEN
     Dosage: 1000 MILLIGRAM, 4D1T. WHEN NEEDED
  5. TEMAZEPAM. [Concomitant]
     Active Substance: TEMAZEPAM
     Dosage: 10 MILLIGRAM, QD
  6. XGEVA [Suspect]
     Active Substance: DENOSUMAB
     Dosage: 120 INJLQD 70MG/ML FLACON 1.7ML, Q4WK
     Route: 065
  7. XGEVA [Suspect]
     Active Substance: DENOSUMAB
     Indication: PROPHYLAXIS
     Dosage: 120 INJLQD 70MG/ML FLACON 1.7ML, Q4WK
     Route: 065
     Dates: start: 20190329
  8. PARACETAMOL [Concomitant]
     Active Substance: ACETAMINOPHEN
     Dosage: 1000 MILLIGRAM, 4D1S
  9. CALCIUM CARBONATE;COLECALCIFEROL [Concomitant]
     Active Substance: CALCIUM CARBONATE\CHOLECALCIFEROL
     Dosage: 1,25G/800IE (500MG CA), QD
  10. FENTANYL. [Concomitant]
     Active Substance: FENTANYL
     Dosage: 12UG/HR (GENERIC+DUROGESIC), 1X3D1PL
  11. FORMOTEROL [Concomitant]
     Active Substance: FORMOTEROL
     Dosage: 12UG/DO 100DO INH 2D1I

REACTIONS (2)
  - Weight decreased [Unknown]
  - Vocal cord paralysis [Not Recovered/Not Resolved]
